FAERS Safety Report 9094376 (Version 3)
Quarter: 2013Q1

REPORT INFORMATION
  Report Type: Spontaneous
  Country: JP (occurrence: JP)
  Receive Date: 20130201
  Receipt Date: 20130318
  Transmission Date: 20140127
  Serious: Yes (Hospitalization)
  Sender: FDA-Public Use
  Company Number: JP-ELI_LILLY_AND_COMPANY-JP201301002135

PATIENT
  Age: 83 Year
  Sex: Female
  Weight: 49 kg

DRUGS (11)
  1. EVISTA [Suspect]
     Indication: OSTEOPOROSIS
     Dosage: 60 MG, QD
     Route: 048
     Dates: start: 20120726, end: 20130109
  2. PLATIBIT [Concomitant]
     Indication: OSTEOPOROSIS
     Dosage: 0.25 UG, QD
     Route: 048
     Dates: start: 20101020
  3. DIART [Concomitant]
     Indication: CARDIAC FAILURE
     Dosage: 60 MG, QD
     Route: 048
     Dates: start: 20091016
  4. LASIX [Concomitant]
     Indication: CARDIAC FAILURE
     Dosage: 40 MG, QD
     Route: 048
     Dates: start: 20080502
  5. ETODOLAC [Concomitant]
     Indication: COMPRESSION FRACTURE
     Dosage: 200 MG, BID
     Route: 048
     Dates: start: 20110422
  6. POTASSIUM ASPARTATE [Concomitant]
     Indication: HYPOKALAEMIA
     Dosage: 900 MG, QD
     Dates: start: 20120405
  7. ARTIST [Concomitant]
     Indication: CARDIAC FAILURE
     Dosage: 1.25 MG, QD
     Route: 048
     Dates: start: 20080502
  8. CALTAN [Concomitant]
     Indication: RENAL FAILURE CHRONIC
     Dosage: 500 MG, QD
     Route: 048
     Dates: start: 20110409
  9. NALFURAFINE HYDROCHLORIDE [Concomitant]
     Indication: PRURITUS
     Dosage: 2.5 UG, QD
     Route: 048
     Dates: start: 20100602
  10. MUCOSTA [Concomitant]
     Dosage: 100 MG, BID
     Route: 048
  11. LANSORAL [Concomitant]
     Indication: ABDOMINAL DISCOMFORT
     Dosage: 15 MG, QD

REACTIONS (1)
  - Shunt occlusion [Not Recovered/Not Resolved]
